FAERS Safety Report 25929969 (Version 3)
Quarter: 2025Q4

REPORT INFORMATION
  Report Type: Report from Study
  Country: EG (occurrence: EG)
  Receive Date: 20251016
  Receipt Date: 20251103
  Transmission Date: 20260118
  Serious: Yes (Hospitalization, Other)
  Sender: NOVARTIS
  Company Number: EG-002147023-NVSC2025EG154034

PATIENT
  Sex: Female
  Weight: 75 kg

DRUGS (6)
  1. ENTRESTO [Suspect]
     Active Substance: SACUBITRIL\VALSARTAN
     Indication: Cardiac failure
     Dosage: 50 MG, BID (ONE TABLET TWICE DAILY) (CONCENTRATION 50 MG)
     Route: 048
     Dates: start: 2019, end: 2020
  2. ENTRESTO [Suspect]
     Active Substance: SACUBITRIL\VALSARTAN
     Dosage: 1.5 DOSAGE FORM, BID (ONE TABLET AND HALF TWICE DAILY) (50 MG)
     Route: 048
     Dates: start: 2020, end: 2021
  3. ENTRESTO [Suspect]
     Active Substance: SACUBITRIL\VALSARTAN
     Dosage: 100 MG, BID (ONE TABLET TWICE DAILY)
     Route: 048
  4. ENTRESTO [Suspect]
     Active Substance: SACUBITRIL\VALSARTAN
     Dosage: ONE TABLET IN THE MORNING AND HALF TABLET IN THE EVENING, (200 MG)
     Route: 048
  5. ENTRESTO [Suspect]
     Active Substance: SACUBITRIL\VALSARTAN
     Dosage: 200 MG, OTHER (ONE TABLET IN THE MORNING AND HALF TABLET IN THE EVENING)
     Route: 048
     Dates: start: 2025
  6. PLAVIX [Concomitant]
     Active Substance: CLOPIDOGREL BISULFATE
     Indication: Blood disorder
     Dosage: 75 MG, QD (ONE TABLET ONCE DAILY) (75 MG)
     Route: 048
     Dates: start: 2019

REACTIONS (7)
  - Thrombosis [Recovered/Resolved]
  - Hypotension [Recovered/Resolved]
  - Mental disorder [Recovered/Resolved]
  - Myocardial infarction [Unknown]
  - Wrong technique in product usage process [Recovered/Resolved]
  - Wrong technique in product usage process [Unknown]
  - Off label use [Unknown]

NARRATIVE: CASE EVENT DATE: 20190101
